FAERS Safety Report 9502224 (Version 1)
Quarter: 2013Q3

REPORT INFORMATION
  Report Type: Spontaneous
  Country: CN (occurrence: CN)
  Receive Date: 20130906
  Receipt Date: 20130906
  Transmission Date: 20140515
  Serious: Yes (Other)
  Sender: FDA-Public Use
  Company Number: CN-ROCHE-1269367

PATIENT
  Sex: Male

DRUGS (3)
  1. ROCEPHIN [Suspect]
     Indication: DRUG-INDUCED LIVER INJURY
     Route: 042
     Dates: start: 20120730, end: 20120801
  2. AZITHROMYCIN [Suspect]
     Indication: DRUG-INDUCED LIVER INJURY
     Route: 048
     Dates: start: 20120730, end: 20120801
  3. AMBROXOL HYDROCHLORIDE [Suspect]
     Indication: DRUG-INDUCED LIVER INJURY
     Route: 042
     Dates: start: 20120730, end: 20120801

REACTIONS (1)
  - Hepatitis [Unknown]
